FAERS Safety Report 19392970 (Version 1)
Quarter: 2021Q2

REPORT INFORMATION
  Report Type: Spontaneous
  Country: US (occurrence: US)
  Receive Date: 20210609
  Receipt Date: 20210609
  Transmission Date: 20210717
  Serious: No
  Sender: FDA-Public Use
  Company Number: US-SA-2021SA191616

PATIENT
  Sex: Female

DRUGS (2)
  1. SULPHAMETHOXAZOLE + TRIMETHOPRIM [Concomitant]
     Active Substance: SULFAMETHOXAZOLE\TRIMETHOPRIM
     Indication: URINARY TRACT INFECTION
     Dosage: UNK
  2. DUPIXENT [Suspect]
     Active Substance: DUPILUMAB
     Dosage: 300 MG, QOW
     Route: 058
     Dates: start: 202007

REACTIONS (6)
  - Injection site swelling [Recovered/Resolved]
  - Urinary tract infection [Unknown]
  - Injection site pruritus [Recovered/Resolved]
  - Dysgeusia [Unknown]
  - Dry skin [Unknown]
  - Rash macular [Unknown]

NARRATIVE: CASE EVENT DATE: 202007
